FAERS Safety Report 6141081-7 (Version None)
Quarter: 2009Q2

REPORT INFORMATION
  Report Type: 
  Country: None (occurrence: None)
  Receive Date: 20090402
  Receipt Date: 20090323
  Transmission Date: 20091009
  Serious: Yes (Disabling)
  Sender: FDA-Public Use
  Company Number: DK-JNJFOC-20090305975

PATIENT
  Sex: Female

DRUGS (3)
  1. REMICADE [Suspect]
     Route: 042
  2. REMICADE [Suspect]
     Indication: RHEUMATOID ARTHRITIS
     Dosage: AT WEEK 0, 2, 6, AND 8
     Route: 042
  3. METHOTREXATE [Concomitant]
     Route: 058

REACTIONS (1)
  - VITREOUS DETACHMENT [None]
